FAERS Safety Report 15336399 (Version 3)
Quarter: 2018Q4

REPORT INFORMATION
  Report Type: Spontaneous
  Country: US (occurrence: US)
  Receive Date: 20180830
  Receipt Date: 20181101
  Transmission Date: 20190204
  Serious: No
  Sender: FDA-Public Use
  Company Number: US-ACTELION-A-NJ2018-178105

PATIENT
  Age: 72 Year
  Sex: Female
  Weight: 111.11 kg

DRUGS (1)
  1. OPSUMIT [Suspect]
     Active Substance: MACITENTAN
     Indication: PULMONARY ARTERIAL HYPERTENSION
     Dosage: 10 MG, QD
     Route: 048
     Dates: start: 20180821

REACTIONS (6)
  - Adverse drug reaction [Unknown]
  - Dyspnoea [Recovered/Resolved]
  - Nausea [Unknown]
  - Hepatic enzyme increased [Unknown]
  - Vomiting [Unknown]
  - Chromaturia [Unknown]

NARRATIVE: CASE EVENT DATE: 20180821
